FAERS Safety Report 8328724-4 (Version None)
Quarter: 2012Q2

REPORT INFORMATION
  Report Type: 
  Country: None (occurrence: None)
  Receive Date: 20120430
  Receipt Date: 20120414
  Transmission Date: 20120825
  Serious: Yes (Hospitalization)
  Sender: FDA-Public Use
  Company Number: 2012AP001031

PATIENT
  Age: 61 Year
  Sex: Female

DRUGS (12)
  1. THIOTHIXENE HYDROCHLORIDE [Concomitant]
  2. TRIFLUOPERAZINE HCL [Concomitant]
  3. THIORIDAZINE HCL [Concomitant]
  4. POLYETHYLENE GLYCOL [Concomitant]
  5. BISACODYL [Concomitant]
  6. CHLORPROMAZINE [Concomitant]
  7. TRAZODONE HCL [Suspect]
     Indication: INSOMNIA
     Dosage: 25 MG;QD
  8. DOCUSATE SODIUM [Concomitant]
  9. FLUOXETINE HYDROCHLORIDE [Suspect]
     Indication: INSOMNIA
     Dosage: 40 MG;QD
  10. CLOZAPINE [Suspect]
     Indication: SCHIZOPHRENIA, PARANOID TYPE
     Dosage: 500 MG;QD ; 50 MG;AM ; 250 MG;HS
  11. QUETIAPINE [Concomitant]
  12. HALOPERIDOL [Concomitant]

REACTIONS (7)
  - ILEUS PARALYTIC [None]
  - SMALL INTESTINAL OBSTRUCTION [None]
  - ABSCESS INTESTINAL [None]
  - CONSTIPATION [None]
  - DRUG LEVEL INCREASED [None]
  - INTESTINAL ISCHAEMIA [None]
  - DRUG INTERACTION [None]
